FAERS Safety Report 8776916 (Version 1)
Quarter: 2012Q4

REPORT INFORMATION
  Report Type: 
  Country: US (occurrence: US)
  Receive Date: 20120911
  Receipt Date: 20120911
  Transmission Date: 20130627
  Serious: Yes (Life-Threatening, Hospitalization)
  Sender: FDA-Public Use
  Company Number: US-JNJFOC-20120902566

PATIENT
  Age: 46 Year
  Sex: Male

DRUGS (2)
  1. MINOXIDIL [Suspect]
     Route: 048
  2. MINOXIDIL [Suspect]
     Indication: INTENTIONAL DRUG MISUSE
     Route: 048

REACTIONS (8)
  - Hypotension [Recovered/Resolved]
  - Tachycardia [Recovered/Resolved]
  - Troponin increased [Recovered/Resolved]
  - Nausea [Recovered/Resolved]
  - Vomiting [Recovered/Resolved]
  - Dizziness [Recovered/Resolved]
  - Intentional drug misuse [Unknown]
  - Overdose [Unknown]
